FAERS Safety Report 9231566 (Version 1)
Quarter: 2013Q2

REPORT INFORMATION
  Report Type: Spontaneous
  Country: FR (occurrence: FR)
  Receive Date: 20130415
  Receipt Date: 20130415
  Transmission Date: 20140414
  Serious: Yes (Other)
  Sender: FDA-Public Use
  Company Number: FR-ASTRAZENECA-2013SE22908

PATIENT
  Age: 70 Year
  Sex: Female

DRUGS (5)
  1. BRILIQUE [Suspect]
     Indication: ACUTE CORONARY SYNDROME
     Route: 048
     Dates: start: 201302, end: 201302
  2. KARDEGIC [Concomitant]
     Indication: ACUTE CORONARY SYNDROME
     Route: 048
  3. COVERSYL [Concomitant]
     Indication: ACUTE CORONARY SYNDROME
     Route: 048
  4. BISOPROLOL [Concomitant]
     Indication: ACUTE CORONARY SYNDROME
     Route: 048
  5. STATIN DRUG [Concomitant]
     Indication: CARDIOVASCULAR EVENT PROPHYLAXIS
     Route: 048

REACTIONS (1)
  - Malaise [Recovered/Resolved]
